FAERS Safety Report 21263147 (Version 2)
Quarter: 2022Q4

REPORT INFORMATION
  Report Type: Other
  Country: DE (occurrence: None)
  Receive Date: 20220828
  Receipt Date: 20221129
  Transmission Date: 20230112
  Serious: Yes (Hospitalization)
  Sender: FDA-Public Use
  Company Number: DE-ROCHE-3164094

PATIENT
  Sex: Female

DRUGS (10)
  1. TOCILIZUMAB [Suspect]
     Active Substance: TOCILIZUMAB
     Indication: Rheumatoid arthritis
     Route: 058
  2. LEVOTHYROXINE [Concomitant]
     Active Substance: LEVOTHYROXINE
  3. BISOPROLOL FUMARATE [Concomitant]
     Active Substance: BISOPROLOL FUMARATE
  4. TRAMADOL [Concomitant]
     Active Substance: TRAMADOL
  5. TRAMADOL [Concomitant]
     Active Substance: TRAMADOL
  6. ERGOCALCIFEROL [Concomitant]
     Active Substance: ERGOCALCIFEROL
     Dates: start: 201603
  7. PRIMIDONE [Concomitant]
     Active Substance: PRIMIDONE
  8. DICLOFENAC [Concomitant]
     Active Substance: DICLOFENAC
  9. ATORVASTATIN [Concomitant]
     Active Substance: ATORVASTATIN
  10. TRAMADOL [Concomitant]
     Active Substance: TRAMADOL

REACTIONS (1)
  - Coronavirus infection [Recovered/Resolved]

NARRATIVE: CASE EVENT DATE: 20220603
